FAERS Safety Report 7560275-7 (Version None)
Quarter: 2011Q2

REPORT INFORMATION
  Report Type: 
  Country: None (occurrence: None)
  Receive Date: 20110617
  Receipt Date: 20110617
  Transmission Date: 20111010
  Serious: Yes (Life-Threatening, Hospitalization)
  Sender: FDA-Public Use
  Company Number: None

PATIENT
  Sex: Female
  Weight: 72.5 kg

DRUGS (15)
  1. LANOXIN [Concomitant]
  2. GLUCOPHAGE [Concomitant]
  3. ZOCOR [Concomitant]
  4. COUMADIN [Concomitant]
  5. LOPID [Concomitant]
  6. IMDUR [Concomitant]
  7. OMEPRAZOLE -PRILOSEC- [Concomitant]
  8. LISINOPRIL [Suspect]
     Indication: HYPERTENSION
     Dosage: 40 MG TWICE DAILY PO
     Route: 048
  9. ELAVIL [Concomitant]
  10. DULCOLAX [Concomitant]
  11. AMARYL [Concomitant]
  12. NITROGLYCERIN -NITROSTAT- [Concomitant]
  13. DILTIAZEM -DILTIAZEM ER- [Concomitant]
  14. HYDROCHLOROTHIAZIDE [Concomitant]
  15. METOPROLOL -LOPRESSOR- [Concomitant]

REACTIONS (7)
  - FALL [None]
  - DISORIENTATION [None]
  - DIZZINESS [None]
  - CONFUSIONAL STATE [None]
  - ANGIOEDEMA [None]
  - TONGUE DISORDER [None]
  - DYSPNOEA [None]
